FAERS Safety Report 5800466-6 (Version None)
Quarter: 2008Q3

REPORT INFORMATION
  Report Type: 
  Country: None (occurrence: None)
  Receive Date: 20080703
  Receipt Date: 20080626
  Transmission Date: 20090109
  Serious: Yes (Hospitalization)
  Sender: FDA-Public Use
  Company Number: A0728118A

PATIENT
  Age: 46 Year
  Sex: Male

DRUGS (7)
  1. LANOXIN [Suspect]
     Indication: CARDIAC FAILURE
     Dosage: 250MCG PER DAY
     Route: 048
     Dates: start: 19990101
  2. COREG CR [Concomitant]
  3. LISINOPRIL [Concomitant]
  4. LASIX [Concomitant]
  5. ASPIRIN [Concomitant]
  6. POTASSIUM CHLORIDE [Concomitant]
  7. LIPITOR [Concomitant]

REACTIONS (3)
  - ATRIAL FIBRILLATION [None]
  - CARDIAC DISORDER [None]
  - CARDIOACTIVE DRUG LEVEL DECREASED [None]
